FAERS Safety Report 19321606 (Version 2)
Quarter: 2021Q2

REPORT INFORMATION
  Report Type: Spontaneous
  Country: US (occurrence: US)
  Receive Date: 20210528
  Receipt Date: 20210531
  Transmission Date: 20210717
  Serious: No
  Sender: FDA-Public Use
  Company Number: US-ELI_LILLY_AND_COMPANY-US202105011948

PATIENT
  Sex: Female

DRUGS (4)
  1. RUBRACA [Concomitant]
     Active Substance: RUCAPARIB CAMSYLATE
     Dosage: REDUCED DOSE
     Route: 065
     Dates: start: 20210401
  2. RUBRACA [Concomitant]
     Active Substance: RUCAPARIB CAMSYLATE
     Indication: OVARIAN CANCER
     Dosage: 400 MG, BID
     Route: 048
     Dates: start: 201907
  3. CYMBALTA [Suspect]
     Active Substance: DULOXETINE HYDROCHLORIDE
     Indication: PRODUCT USED FOR UNKNOWN INDICATION
     Dosage: 300 MG, DAILY
     Route: 065
     Dates: start: 2019
  4. RUBRACA [Concomitant]
     Active Substance: RUCAPARIB CAMSYLATE
     Dosage: UNK, UNKNOWN
     Route: 065

REACTIONS (4)
  - Feeling abnormal [Unknown]
  - Psychomotor hyperactivity [Unknown]
  - Dizziness [Unknown]
  - Overdose [Unknown]
